FAERS Safety Report 4983931-3 (Version None)
Quarter: 2006Q2

REPORT INFORMATION
  Report Type: 
  Country: None (occurrence: None)
  Receive Date: 20060426
  Receipt Date: 20050414
  Transmission Date: 20061013
  Serious: Yes (Death, Disabling)
  Sender: FDA-Public Use
  Company Number: US-MERCK-0504USA03027

PATIENT
  Age: 45 Year
  Sex: Male
  Weight: 66 kg

DRUGS (1)
  1. VIOXX [Suspect]
     Indication: INFLAMMATION
     Route: 048
     Dates: start: 20010101, end: 20030912

REACTIONS (4)
  - CARDIAC ARREST [None]
  - DIABETES MELLITUS [None]
  - MYOCARDIAL INFARCTION [None]
  - RENAL FAILURE [None]
